FAERS Safety Report 10062557 (Version 1)
Quarter: 2014Q2

REPORT INFORMATION
  Report Type: Spontaneous
  Country: FR (occurrence: FR)
  Receive Date: 20140407
  Receipt Date: 20140407
  Transmission Date: 20141212
  Serious: Yes (Hospitalization)
  Sender: FDA-Public Use
  Company Number: FR-PFIZER INC-2014092268

PATIENT
  Age: 47 Year
  Sex: Female

DRUGS (11)
  1. NEURONTIN [Suspect]
     Dosage: 100 MG, 3X/DAY
     Route: 048
     Dates: start: 20140218, end: 20140302
  2. NEURONTIN [Suspect]
     Dosage: 200 MG, 3X/DAY
     Dates: start: 20140303, end: 20140306
  3. NEURONTIN [Suspect]
     Dosage: 300 MG, 3X/DAY
     Route: 048
     Dates: start: 20140307
  4. COUMADINE [Concomitant]
     Dosage: UNK
     Dates: start: 20140217
  5. DICODIN [Concomitant]
     Dosage: 60 MG, 2X/DAY
  6. LIORESAL [Concomitant]
  7. INEXIUM /01479302/ [Concomitant]
     Dosage: 20 MG, DAILY
  8. CERIS [Concomitant]
  9. GAVISCON [Concomitant]
  10. FORLAX [Concomitant]
  11. LOXEN [Concomitant]

REACTIONS (2)
  - Cell death [Unknown]
  - Cholestasis [Unknown]
